FAERS Safety Report 7054283-2 (Version None)
Quarter: 2010Q4

REPORT INFORMATION
  Report Type: 
  Country: None (occurrence: None)
  Receive Date: 20101014
  Receipt Date: 20100927
  Transmission Date: 20110411
  Serious: Yes (Death, Hospitalization, Other)
  Sender: FDA-Public Use
  Company Number: 2008000184

PATIENT
  Age: 53 Year
  Sex: Male
  Weight: 178 kg

DRUGS (6)
  1. TARCEVA [Suspect]
     Indication: NON-SMALL CELL LUNG CANCER
     Dosage: (150 MG, QD), ORAL
     Route: 048
     Dates: start: 20071120, end: 20071206
  2. FRAGMIN [Concomitant]
  3. MARCUMAR [Concomitant]
  4. TRYPSIN (TRYPSIN) [Concomitant]
  5. CISPLATIN [Concomitant]
  6. VINORELBINE [Concomitant]

REACTIONS (13)
  - ABASIA [None]
  - ACUTE HEPATIC FAILURE [None]
  - CHOLESTASIS [None]
  - DISSEMINATED INTRAVASCULAR COAGULATION [None]
  - FOLLICULITIS [None]
  - GALLBLADDER OEDEMA [None]
  - GENERAL PHYSICAL HEALTH DETERIORATION [None]
  - HEPATIC NECROSIS [None]
  - HEPATITIS [None]
  - MALIGNANT NEOPLASM PROGRESSION [None]
  - NON-SMALL CELL LUNG CANCER [None]
  - RENAL FAILURE [None]
  - THROMBOSIS [None]
